FAERS Safety Report 24258955 (Version 1)
Quarter: 2024Q3

REPORT INFORMATION
  Report Type: Spontaneous
  Country: BG (occurrence: BG)
  Receive Date: 20240828
  Receipt Date: 20240828
  Transmission Date: 20241017
  Serious: Yes (Other)
  Sender: UCB
  Company Number: BG-UCBSA-2024043233

PATIENT
  Age: 66 Year
  Sex: Male

DRUGS (5)
  1. BRIVARACETAM [Suspect]
     Active Substance: BRIVARACETAM
     Indication: Partial seizures
     Dosage: 200 MILLIGRAM PER DAY
  2. LEVETIRACETAM [Suspect]
     Active Substance: LEVETIRACETAM
     Indication: Partial seizures
     Dosage: 3000 MILLIGRAM PER DAY
  3. VALPROATE [Suspect]
     Active Substance: VALPROIC ACID
     Indication: Partial seizures
     Dosage: 2000 MILLIGRAM PER DAY
  4. PREGABALIN [Suspect]
     Active Substance: PREGABALIN
     Indication: Partial seizures
     Dosage: 600 MILLIGRAM PER DAY
  5. PHENOBARBITAL [Suspect]
     Active Substance: PHENOBARBITAL
     Indication: Partial seizures
     Dosage: 125 MILLIGRAM PER DAY

REACTIONS (3)
  - Seizure [Unknown]
  - Paradoxical drug reaction [Unknown]
  - Multiple-drug resistance [Unknown]
